FAERS Safety Report 23770045 (Version 4)
Quarter: 2024Q4

REPORT INFORMATION
  Report Type: Spontaneous
  Country: US (occurrence: US)
  Receive Date: 20240422
  Receipt Date: 20241223
  Transmission Date: 20250115
  Serious: Yes (Hospitalization)
  Sender: NOVO NORDISK
  Company Number: US-NOVOPROD-1208235

PATIENT
  Age: 82 Year
  Sex: Male

DRUGS (2)
  1. OZEMPIC [Suspect]
     Active Substance: SEMAGLUTIDE
     Indication: Type 2 diabetes mellitus
     Dosage: 0.25 MG, QW
     Route: 058
     Dates: start: 2024
  2. OZEMPIC [Suspect]
     Active Substance: SEMAGLUTIDE
     Dosage: 0.5 MG, QW
     Route: 058

REACTIONS (4)
  - Heart rate irregular [Recovered/Resolved]
  - Blood glucose increased [Unknown]
  - Inappropriate schedule of product administration [Not Recovered/Not Resolved]
  - Intercepted product dispensing error [Recovered/Resolved]

NARRATIVE: CASE EVENT DATE: 20240101
